FAERS Safety Report 4590480-3 (Version None)
Quarter: 2005Q1

REPORT INFORMATION
  Report Type: 
  Country: None (occurrence: None)
  Receive Date: 20050224
  Receipt Date: 20050214
  Transmission Date: 20050727
  Serious: Yes (Hospitalization)
  Sender: FDA-Public Use
  Company Number: FR-BRISTOL-MYERS SQUIBB COMPANY-12863221

PATIENT
  Age: 47 Year
  Sex: Female
  Weight: 65 kg

DRUGS (6)
  1. APROVEL [Suspect]
     Route: 048
     Dates: start: 20040615, end: 20040721
  2. PREVISCAN [Suspect]
     Dates: start: 20020615, end: 20040721
  3. RESOURCE NUTRIDORAL [Concomitant]
  4. AZINC [Concomitant]
     Dosage: 1 TAB IN MORNING FOR 10 DAYS A MONTH
  5. CALCIUM FOLINATE [Concomitant]
     Dosage: 1 VIAL 10 DAYS PER MONTH
  6. VITAMIN B-12 [Concomitant]
     Dosage: 1 VIAL 10 DAYS PER MONTH

REACTIONS (6)
  - ANAEMIA [None]
  - HAEMATURIA [None]
  - HAEMOLYSIS [None]
  - PAIN [None]
  - PROTHROMBIN TIME RATIO DECREASED [None]
  - RENAL FAILURE ACUTE [None]
